FAERS Safety Report 22263884 (Version 1)
Quarter: 2023Q2

REPORT INFORMATION
  Report Type: Spontaneous
  Country: US (occurrence: None)
  Receive Date: 20230426
  Receipt Date: 20230426
  Transmission Date: 20230722
  Serious: Yes (Hospitalization)
  Sender: FDA-Public Use
  Company Number: None

PATIENT
  Age: 67 Year
  Sex: Female
  Weight: 52.98 kg

DRUGS (16)
  1. CAPECITABINE [Suspect]
     Active Substance: CAPECITABINE
     Indication: Malignant neoplasm of ampulla of Vater
     Dosage: 100-1500MG TWICE DAILY ORAL?
     Route: 048
     Dates: start: 202303
  2. ALENDRONATE [Concomitant]
  3. AMITRIPYLINE [Concomitant]
  4. AMLODIPINE-ATORVASTATIN [Concomitant]
  5. CLONAZPEAM [Concomitant]
  6. CYCLOBENZAPRINE [Concomitant]
  7. DIPHENHYDRAMINE [Concomitant]
  8. LIDOCAINE\PRILOCAINE [Concomitant]
     Active Substance: LIDOCAINE\PRILOCAINE
  9. LOPERAMIDE [Concomitant]
  10. ONDANSETRON [Concomitant]
  11. OXYCODONE [Concomitant]
     Active Substance: OXYCODONE
  12. POTASSIUM CHLORIDE ER [Concomitant]
  13. PROMETHAZINE [Concomitant]
  14. ACETAMINOPHEN\TRAMADOL [Concomitant]
     Active Substance: ACETAMINOPHEN\TRAMADOL
  15. UDDERLY SMOOTH CREAM [Concomitant]
  16. VARENICLINE [Concomitant]

REACTIONS (2)
  - Pancreatitis [None]
  - Therapy interrupted [None]
